FAERS Safety Report 7640269-3 (Version None)
Quarter: 2011Q3

REPORT INFORMATION
  Report Type: 
  Country: None (occurrence: None)
  Receive Date: 20110728
  Receipt Date: 20110722
  Transmission Date: 20111222
  Serious: Yes (Other)
  Sender: FDA-Public Use
  Company Number: US-BAYER-201019686NA

PATIENT
  Age: 37 Year
  Sex: Female
  Weight: 81.633 kg

DRUGS (7)
  1. YAZ [Suspect]
     Route: 048
  2. PREVACID [Concomitant]
     Dosage: 30 MG, UNK
     Dates: start: 20060616
  3. YASMIN [Suspect]
     Indication: CONTRACEPTION
     Route: 048
     Dates: start: 20060615, end: 20091022
  4. ANTIBIOTICS [Concomitant]
  5. DROSPIRENONE AND ETHINYL ESTRADIOL [Suspect]
     Route: 048
     Dates: start: 20090725, end: 20090930
  6. NAPROXEN [Concomitant]
     Dosage: 550 MG, UNK
     Dates: start: 20060410
  7. FLUCONAZOLE [Concomitant]
     Dosage: 150 MG, UNK
     Dates: start: 20060630

REACTIONS (6)
  - CHOLECYSTITIS CHRONIC [None]
  - VOMITING [None]
  - MUSCULOSKELETAL CHEST PAIN [None]
  - GALLBLADDER DISORDER [None]
  - NAUSEA [None]
  - ABDOMINAL PAIN UPPER [None]
